FAERS Safety Report 9908033 (Version 1)
Quarter: 2014Q1

REPORT INFORMATION
  Report Type: Spontaneous
  Country: US (occurrence: None)
  Receive Date: 20140214
  Receipt Date: 20140214
  Transmission Date: 20141002
  Serious: No
  Sender: FDA-Public Use
  Company Number: None

PATIENT
  Age: 85 Year
  Sex: Male

DRUGS (5)
  1. HALOPERIDOL [Suspect]
     Indication: AGITATION
     Route: 048
  2. BENZTROPIN [Concomitant]
  3. DOCUSATE [Concomitant]
  4. ASPIRIN [Concomitant]
  5. MIRALAX [Concomitant]

REACTIONS (4)
  - Pyrexia [None]
  - Muscle rigidity [None]
  - White blood cell count increased [None]
  - Neuroleptic malignant syndrome [None]
